FAERS Safety Report 4654938-0 (Version None)
Quarter: 2005Q2

REPORT INFORMATION
  Report Type: 
  Country: None (occurrence: None)
  Receive Date: 20050504
  Receipt Date: 20050421
  Transmission Date: 20051028
  Serious: Yes (Hospitalization)
  Sender: FDA-Public Use
  Company Number: KII-2005-0016307

PATIENT
  Age: 40 Year
  Sex: Female

DRUGS (1)
  1. MORPHINE SULFATE [Suspect]
     Dosage: ORAL
     Route: 048

REACTIONS (10)
  - ACCIDENTAL OVERDOSE [None]
  - ANION GAP ABNORMAL [None]
  - ANURIA [None]
  - BODY TEMPERATURE INCREASED [None]
  - DEPRESSED LEVEL OF CONSCIOUSNESS [None]
  - HYPOACUSIS [None]
  - LETHARGY [None]
  - OVERDOSE [None]
  - RENAL FAILURE [None]
  - SOMNOLENCE [None]
